FAERS Safety Report 4945112-9 (Version None)
Quarter: 2006Q1

REPORT INFORMATION
  Report Type: 
  Country: None (occurrence: None)
  Receive Date: 20060307
  Receipt Date: 20060227
  Transmission Date: 20060701
  Serious: Yes (Life-Threatening, Hospitalization, Other)
  Sender: FDA-Public Use
  Company Number: HQWYE788201DEC05

PATIENT
  Age: 4 Year
  Sex: Male
  Weight: 24.9 kg

DRUGS (2)
  1. BENEFIX [Suspect]
     Indication: FACTOR IX DEFICIENCY
     Dosage: SEE IMAGE
     Dates: start: 19991101, end: 20031001
  2. BENEFIX [Suspect]
     Indication: FACTOR IX DEFICIENCY
     Dosage: SEE IMAGE
     Dates: start: 20040903

REACTIONS (2)
  - ANAPHYLACTIC REACTION [None]
  - RESPIRATORY DISTRESS [None]
